FAERS Safety Report 20871535 (Version 1)
Quarter: 2022Q2

REPORT INFORMATION
  Report Type: Spontaneous
  Country: US (occurrence: US)
  Receive Date: 20220525
  Receipt Date: 20220525
  Transmission Date: 20220721
  Serious: No
  Sender: FDA-Public Use
  Company Number: US-JNJFOC-20220544887

PATIENT
  Age: 13 Year
  Sex: Male

DRUGS (1)
  1. VISINE A MULTI-ACTION EYE ALLERGY RELIEF [Suspect]
     Active Substance: NAPHAZOLINE HYDROCHLORIDE\PHENIRAMINE MALEATE
     Indication: Eye allergy
     Dosage: A DROP ONLY FOR 2 DAYS / TWICE A DAY
     Route: 047
     Dates: start: 20220429, end: 202204

REACTIONS (1)
  - Eye irritation [Unknown]

NARRATIVE: CASE EVENT DATE: 20220401
